FAERS Safety Report 6169741-2 (Version None)
Quarter: 2009Q2

REPORT INFORMATION
  Report Type: 
  Country: None (occurrence: None)
  Receive Date: 20090428
  Receipt Date: 20090421
  Transmission Date: 20091009
  Serious: Yes (Life-Threatening, Hospitalization, Disabling)
  Sender: FDA-Public Use
  Company Number: JP-BAYER-200911229BYL

PATIENT
  Age: 58 Year
  Sex: Male
  Weight: 64 kg

DRUGS (24)
  1. FLUDARA [Suspect]
     Indication: ACUTE MYELOID LEUKAEMIA
     Dosage: AS USED: 25 MG/M2  UNIT DOSE: 50 MG
     Route: 042
     Dates: start: 20080805, end: 20080807
  2. FLUDARA [Suspect]
     Dosage: AS USED: 25 MG/M2  UNIT DOSE: 50 MG
     Route: 042
     Dates: start: 20080809, end: 20080811
  3. SANDIMMUNE [Suspect]
     Indication: PROPHYLAXIS AGAINST GRAFT VERSUS HOST DISEASE
     Route: 042
     Dates: start: 20080811
  4. DENOSINE [Suspect]
     Indication: ENCEPHALITIS VIRAL
     Route: 042
     Dates: start: 20080910, end: 20081130
  5. ARASENA A [Suspect]
     Indication: ENCEPHALITIS VIRAL
     Dosage: AS USED: 900 MG
     Route: 042
     Dates: start: 20080925, end: 20081027
  6. SOLU-CORTEF [Suspect]
     Indication: PROPHYLAXIS
     Route: 042
     Dates: start: 20080812, end: 20081129
  7. ALKERAN [Concomitant]
     Indication: ACUTE MYELOID LEUKAEMIA
     Dosage: AS USED: 40 MG/M2
     Route: 042
     Dates: start: 20080909, end: 20080910
  8. VFEND [Concomitant]
     Dosage: AS USED: 400 MG
     Route: 042
     Dates: start: 20080901, end: 20080902
  9. VFEND [Concomitant]
     Route: 048
     Dates: end: 20081112
  10. VANCOMYCIN HYDROCHLORIDE [Concomitant]
     Indication: INFECTION PROPHYLAXIS
     Dosage: AS USED: 2 G
     Route: 048
     Dates: end: 20080911
  11. FUNGIZONE [Concomitant]
     Indication: INFECTION PROPHYLAXIS
     Dosage: AS USED: 400 MG
     Route: 048
     Dates: end: 20080911
  12. BAKTAR [Concomitant]
     Indication: INFECTION PROPHYLAXIS
     Dosage: AS USED: 4 DF  UNIT DOSE: 1 DF
     Route: 048
     Dates: end: 20080811
  13. CLARITH [Concomitant]
     Indication: INFECTION PROPHYLAXIS
     Dosage: AS USED: 400 MG
     Route: 048
     Dates: end: 20080811
  14. MUCODYNE [Concomitant]
     Indication: CHRONIC SINUSITIS
     Dosage: AS USED: 1500 MG
     Route: 048
     Dates: end: 20080811
  15. LEFTOSE [Concomitant]
     Indication: CHRONIC SINUSITIS
     Dosage: AS USED: 50 MG
     Route: 048
     Dates: end: 20080811
  16. DALACIN-S [Concomitant]
     Route: 042
     Dates: end: 20080809
  17. VICCLOX [Concomitant]
     Indication: INFECTION PROPHYLAXIS
     Dosage: AS USED: 500 MG
     Route: 042
     Dates: start: 20080812, end: 20080924
  18. CELLCEPT [Concomitant]
     Indication: PROPHYLAXIS AGAINST GRAFT VERSUS HOST DISEASE
     Route: 048
     Dates: start: 20080809, end: 20081130
  19. PREDONINE [Concomitant]
     Route: 048
     Dates: start: 20080925, end: 20080929
  20. TAZOCIN [Concomitant]
     Route: 042
     Dates: start: 20080807, end: 20080809
  21. NISSEKI POLYGLOBIN-N [Concomitant]
     Indication: INFECTION PROPHYLAXIS
     Route: 042
     Dates: start: 20080812, end: 20081015
  22. CONCENTRATED RED CELLS [Concomitant]
     Indication: PACKED RED BLOOD CELL TRANSFUSION
     Route: 042
     Dates: start: 20080806, end: 20090123
  23. PLATELETS [Concomitant]
     Indication: PLATELET TRANSFUSION
     Route: 042
     Dates: start: 20080806, end: 20090219
  24. PASIL [Concomitant]
     Indication: SEPSIS
     Route: 042
     Dates: start: 20080831, end: 20081122

REACTIONS (24)
  - ACUTE GRAFT VERSUS HOST DISEASE [None]
  - BLOOD PRESSURE DECREASED [None]
  - CHOLINERGIC SYNDROME [None]
  - DIABETES MELLITUS [None]
  - DIARRHOEA [None]
  - ENCEPHALITIS VIRAL [None]
  - FEBRILE NEUTROPENIA [None]
  - FUNGAL INFECTION [None]
  - GASTROINTESTINAL HAEMORRHAGE [None]
  - HAEMATEMESIS [None]
  - HYPERAESTHESIA [None]
  - HYPERKALAEMIA [None]
  - HYPERNATRAEMIA [None]
  - HYPERTENSION [None]
  - HYPOALBUMINAEMIA [None]
  - ILEUS PARALYTIC [None]
  - MEMORY IMPAIRMENT [None]
  - MYOCLONUS [None]
  - NEUTROPENIA [None]
  - OEDEMA [None]
  - PLEURAL EFFUSION [None]
  - RENAL IMPAIRMENT [None]
  - SEPSIS [None]
  - VENOOCCLUSIVE LIVER DISEASE [None]
